FAERS Safety Report 6571415-0 (Version None)
Quarter: 2010Q1

REPORT INFORMATION
  Report Type: 
  Country: None (occurrence: None)
  Receive Date: 20100205
  Receipt Date: 20100126
  Transmission Date: 20100710
  Serious: Yes (Other)
  Sender: FDA-Public Use
  Company Number: SE-PFIZER INC-2010010091

PATIENT
  Age: 66 Year
  Sex: Female
  Weight: 77 kg

DRUGS (6)
  1. LIPITOR [Suspect]
     Dosage: 20 MG, UNK
     Dates: start: 20091124, end: 20091224
  2. METOPROLOL [Concomitant]
     Dosage: 50 MG, UNK
  3. LEVOTHYROXINE SODIUM [Concomitant]
     Dosage: 100 UG, UNK
  4. ORUDIS - SLOW RELEASE [Concomitant]
     Dosage: 200 MG, UNK
  5. OMEPRAZOL [Concomitant]
     Dosage: 20 MG, UNK
  6. NITRAZEPAM [Concomitant]
     Dosage: UNK

REACTIONS (6)
  - ARTHRALGIA [None]
  - BURNING SENSATION [None]
  - GRIP STRENGTH DECREASED [None]
  - MUSCULOSKELETAL STIFFNESS [None]
  - MYALGIA [None]
  - OEDEMA PERIPHERAL [None]
